FAERS Safety Report 4551097-X (Version None)
Quarter: 2005Q1

REPORT INFORMATION
  Report Type: 
  Country: None (occurrence: None)
  Receive Date: 20050106
  Receipt Date: 20041228
  Transmission Date: 20050727
  Serious: Yes (Other)
  Sender: FDA-Public Use
  Company Number: 2004104980

PATIENT
  Age: 40 Year
  Sex: Male
  Weight: 70 kg

DRUGS (4)
  1. DIFLUCAN [Suspect]
     Indication: OESOPHAGEAL CANDIDIASIS
     Dosage: 100-400 MG, ORAL
     Route: 048
  2. DIFLUCAN [Suspect]
     Indication: PROPHYLAXIS
     Dosage: 100-400 MG, ORAL
     Route: 048
  3. VALORON                (TILIDINE) [Suspect]
     Indication: DEPENDENCE
     Dosage: 200 MG (100 MG), ORAL
     Route: 048
     Dates: start: 19990101
  4. VALORON                (TILIDINE) [Suspect]
     Indication: POLYNEUROPATHY
     Dosage: 200 MG (100 MG), ORAL
     Route: 048
     Dates: start: 19990101

REACTIONS (8)
  - DRUG WITHDRAWAL SYNDROME [None]
  - ERECTILE DYSFUNCTION [None]
  - MEMORY IMPAIRMENT [None]
  - OESOPHAGEAL CANDIDIASIS [None]
  - PAIN IN EXTREMITY [None]
  - PREMATURE AGEING [None]
  - SEXUALLY TRANSMITTED DISEASE [None]
  - SKIN DISORDER [None]
